FAERS Safety Report 16069867 (Version 2)
Quarter: 2019Q2

REPORT INFORMATION
  Report Type: Report from Study
  Country: FR (occurrence: FR)
  Receive Date: 20190314
  Receipt Date: 20190402
  Transmission Date: 20190711
  Serious: Yes (Congenital Anomaly, Other)
  Sender: FDA-Public Use
  Company Number: FR-TEVA-2019-FR-1023228

PATIENT

DRUGS (3)
  1. MYCOPHENOLATE MOFETIL. [Suspect]
     Active Substance: MYCOPHENOLATE MOFETIL
     Route: 065
  2. AMOROLFINE [Suspect]
     Active Substance: AMOROLFINE
     Route: 061
  3. AZATHIOPRINE. [Suspect]
     Active Substance: AZATHIOPRINE
     Route: 065

REACTIONS (13)
  - Craniofacial deformity [Not Recovered/Not Resolved]
  - Congenital hand malformation [Not Recovered/Not Resolved]
  - Congenital aortic anomaly [Not Recovered/Not Resolved]
  - Congenital cardiovascular anomaly [Not Recovered/Not Resolved]
  - Teratogenicity [Not Recovered/Not Resolved]
  - Cystic eyeball, congenital [Not Recovered/Not Resolved]
  - Microphthalmos [Not Recovered/Not Resolved]
  - Coloboma [Not Recovered/Not Resolved]
  - Oesophageal atresia [Not Recovered/Not Resolved]
  - Epiphyses premature fusion [Not Recovered/Not Resolved]
  - Multiple congenital abnormalities [Not Recovered/Not Resolved]
  - Pulmonary malformation [Not Recovered/Not Resolved]
  - Foetal exposure during pregnancy [Unknown]
